FAERS Safety Report 19084615 (Version 1)
Quarter: 2021Q2

REPORT INFORMATION
  Report Type: Spontaneous
  Country: US (occurrence: US)
  Receive Date: 20210401
  Receipt Date: 20210401
  Transmission Date: 20210717
  Serious: No
  Sender: FDA-Public Use
  Company Number: US-IBSA PHARMA-2020-IBS-00774

PATIENT
  Age: 78 Year
  Weight: 113 kg

DRUGS (3)
  1. FLECTOR [Suspect]
     Active Substance: DICLOFENAC EPOLAMINE
     Dosage: ONE PATCH APPLIED EVERY 12 HOURS
     Route: 061
     Dates: start: 2019
  2. FLECTOR [Suspect]
     Active Substance: DICLOFENAC EPOLAMINE
     Dosage: UNK
     Route: 061
  3. FLECTOR [Suspect]
     Active Substance: DICLOFENAC EPOLAMINE
     Indication: ARTHRITIS
     Dosage: ONE PATCH APPLIED EVERY 12 HOURS
     Route: 061
     Dates: start: 2019

REACTIONS (6)
  - Product complaint [Unknown]
  - Product use in unapproved indication [Unknown]
  - Wrong technique in product usage process [Unknown]
  - Application site pruritus [Unknown]
  - Off label use [Unknown]
  - Drug effective for unapproved indication [Unknown]
